FAERS Safety Report 25523215 (Version 1)
Quarter: 2025Q3

REPORT INFORMATION
  Report Type: Spontaneous
  Country: GB (occurrence: GB)
  Receive Date: 20250707
  Receipt Date: 20250707
  Transmission Date: 20251020
  Serious: Yes (Other)
  Sender: SANDOZ
  Company Number: None

PATIENT
  Age: 5 Year
  Sex: Female

DRUGS (1)
  1. MONTELUKAST [Suspect]
     Active Substance: MONTELUKAST
     Indication: Product used for unknown indication
     Route: 065

REACTIONS (4)
  - Mood swings [Not Recovered/Not Resolved]
  - Anxiety [Not Recovered/Not Resolved]
  - Aggression [Not Recovered/Not Resolved]
  - Somnambulism [Not Recovered/Not Resolved]
